FAERS Safety Report 21246544 (Version 2)
Quarter: 2022Q4

REPORT INFORMATION
  Report Type: Spontaneous
  Country: JP (occurrence: JP)
  Receive Date: 20220824
  Receipt Date: 20221123
  Transmission Date: 20230113
  Serious: Yes (Death)
  Sender: FDA-Public Use
  Company Number: JP-MSD-2208JPN002615J

PATIENT
  Age: 92 Year
  Sex: Female
  Weight: 27 kg

DRUGS (3)
  1. LAGEVRIO [Suspect]
     Active Substance: MOLNUPIRAVIR
     Indication: COVID-19 treatment
     Dosage: 600 MILLIGRAM, ONCE
     Route: 048
     Dates: start: 20220813, end: 20220813
  2. LANSOPRAZOLE [Concomitant]
     Active Substance: LANSOPRAZOLE
     Dosage: 15 MILLIGRAM, QD
     Route: 048
     Dates: end: 20220817
  3. NITRODERM [Concomitant]
     Active Substance: NITROGLYCERIN
     Indication: Cardiac failure
     Dosage: 25 MILLIGRAM, QD
     Route: 061
     Dates: start: 20220725, end: 20220817

REACTIONS (3)
  - COVID-19 [Fatal]
  - Underdose [Unknown]
  - Product use issue [Unknown]

NARRATIVE: CASE EVENT DATE: 20220813
